FAERS Safety Report 14299245 (Version 5)
Quarter: 2019Q1

REPORT INFORMATION
  Report Type: Report from Study
  Country: JP (occurrence: JP)
  Receive Date: 20171219
  Receipt Date: 20190121
  Transmission Date: 20190417
  Serious: Yes (Hospitalization, Other)
  Sender: FDA-Public Use
  Company Number: JP-BRISTOL-MYERS SQUIBB COMPANY-BMS-2017-031645

PATIENT
  Age: 45 Year
  Sex: Male
  Weight: 67 kg

DRUGS (1)
  1. NIVOLUMAB [Suspect]
     Active Substance: NIVOLUMAB
     Indication: HEAD AND NECK CANCER
     Dosage: 3 MG/KG, Q2WK
     Route: 041
     Dates: start: 20170331, end: 20170526

REACTIONS (5)
  - Cranial nerve disorder [Recovering/Resolving]
  - Polyneuropathy [Recovering/Resolving]
  - Malignant neoplasm progression [Unknown]
  - Infusion related reaction [Recovered/Resolved]
  - Tinea infection [Not Recovered/Not Resolved]

NARRATIVE: CASE EVENT DATE: 2017
